FAERS Safety Report 17859971 (Version 1)
Quarter: 2020Q2

REPORT INFORMATION
  Report Type: Spontaneous
  Country: US (occurrence: US)
  Receive Date: 20200604
  Receipt Date: 20200604
  Transmission Date: 20200714
  Serious: No
  Sender: FDA-Public Use
  Company Number: US-ASTRAZENECA-2020SE67474

PATIENT
  Sex: Female
  Weight: 102.1 kg

DRUGS (8)
  1. TOUJEO INSULIN [Concomitant]
     Indication: DIABETES MELLITUS
     Dosage: LONG ACTING 80 UNITS DAILY VIA INJECTION IN STOMACH AND TO REGULATE BLOOD SUGAR FOR 24 HOURS AS O...
     Dates: start: 2018
  2. TOUJEO INSULIN [Concomitant]
     Indication: BLOOD GLUCOSE ABNORMAL
     Dosage: LONG ACTING 80 UNITS DAILY VIA INJECTION IN STOMACH AND TO REGULATE BLOOD SUGAR FOR 24 HOURS AS O...
     Dates: start: 2018
  3. PREVASTSTIN [Concomitant]
     Indication: BLOOD CHOLESTEROL
     Dosage: 40MG DAILY-AS OF 9 YEARS AGO
     Route: 048
  4. LOSARTAN. [Concomitant]
     Active Substance: LOSARTAN
     Indication: HYPERTENSION
     Route: 048
     Dates: start: 2016
  5. OXYBUTYNIN. [Concomitant]
     Active Substance: OXYBUTYNIN CHLORIDE
     Indication: BLADDER SPASM
     Route: 048
     Dates: start: 2018
  6. BYDUREON BCISE [Suspect]
     Active Substance: EXENATIDE
     Indication: TYPE 2 DIABETES MELLITUS
     Route: 058
     Dates: start: 201910
  7. HYDROCHLOROTHIAZIDE. [Concomitant]
     Active Substance: HYDROCHLOROTHIAZIDE
     Indication: HYPERTENSION
     Dosage: 25MG DAILY - AS OF 6 YEARS AGO
     Route: 048
  8. NISEDIPINE ER [Concomitant]
     Indication: BLOOD PRESSURE MEASUREMENT
     Route: 048

REACTIONS (6)
  - Diabetes mellitus inadequate control [Unknown]
  - Urticaria [Unknown]
  - Injection site mass [Not Recovered/Not Resolved]
  - Feeling abnormal [Unknown]
  - Injection site pruritus [Unknown]
  - Injection site bruising [Not Recovered/Not Resolved]
